FAERS Safety Report 9846157 (Version 3)
Quarter: 2014Q1

REPORT INFORMATION
  Report Type: Spontaneous
  Country: US (occurrence: US)
  Receive Date: 20140127
  Receipt Date: 20140325
  Transmission Date: 20141002
  Serious: No
  Sender: FDA-Public Use
  Company Number: US-009507513-1401USA008139

PATIENT
  Sex: Female

DRUGS (4)
  1. PEGINTRON [Suspect]
     Indication: HEPATITIS C
     Dosage: REDIPEN; 0.5 CC
     Route: 058
     Dates: start: 20140112
  2. REBETOL [Suspect]
     Indication: HEPATITIS C
     Dosage: 1000 MG, BID
     Route: 048
     Dates: start: 20140112
  3. LEVOTHYROXINE SODIUM [Concomitant]
     Dosage: 125 MICROGRAM, QW
  4. CYCLOBENZAPRINE HYDROCHLORIDE [Concomitant]
     Dosage: PRN

REACTIONS (10)
  - Hypoaesthesia oral [Unknown]
  - Hypoaesthesia [Unknown]
  - Pyrexia [Unknown]
  - Headache [Not Recovered/Not Resolved]
  - Hyperhidrosis [Unknown]
  - Injection site erythema [Unknown]
  - Injection site pruritus [Unknown]
  - Nausea [Not Recovered/Not Resolved]
  - Injection site bruising [Unknown]
  - Rash [Not Recovered/Not Resolved]
